APPROVED DRUG PRODUCT: PROPRANOLOL HYDROCHLORIDE AND HYDROCHLOROTHIAZIDE
Active Ingredient: HYDROCHLOROTHIAZIDE; PROPRANOLOL HYDROCHLORIDE
Strength: 25MG;40MG
Dosage Form/Route: TABLET;ORAL
Application: A070705 | Product #002
Applicant: ANI PHARMACEUTICALS INC
Approved: Oct 1, 1986 | RLD: No | RS: No | Type: DISCN